FAERS Safety Report 7446014-9 (Version None)
Quarter: 2011Q2

REPORT INFORMATION
  Report Type: 
  Country: None (occurrence: None)
  Receive Date: 20110429
  Receipt Date: 20110419
  Transmission Date: 20111010
  Serious: Yes (Death)
  Sender: FDA-Public Use
  Company Number: US-GENZYME-CLOF-1001575

PATIENT
  Age: 58 Year
  Sex: Female

DRUGS (9)
  1. CLOLAR [Suspect]
     Indication: ACUTE MYELOID LEUKAEMIA
     Dosage: 50 MG/KG, QD OVER 1 HOUR, DAYS -6 TO -2
     Route: 042
  2. FLUCONAZOLE [Concomitant]
     Indication: PROPHYLAXIS
  3. CLOLAR [Suspect]
     Indication: STEM CELL TRANSPLANT
  4. BUSULFAN [Suspect]
     Indication: ACUTE MYELOID LEUKAEMIA
     Dosage: 0.8 MG/KG, QD OVER 2 HOURS, ON DAYS -7 TO -7
     Route: 042
  5. TACROLIMUS [Concomitant]
     Indication: PROPHYLAXIS AGAINST GRAFT VERSUS HOST DISEASE
     Dosage: STARTING DAY -3
  6. SIROLIMUS [Concomitant]
     Indication: PROPHYLAXIS AGAINST GRAFT VERSUS HOST DISEASE
     Dosage: STARTING DAY -3
  7. ACYCLOVIR [Concomitant]
     Indication: PROPHYLAXIS
  8. BUSULFAN [Suspect]
     Indication: STEM CELL TRANSPLANT
  9. CIPROFLOXACIN [Concomitant]
     Indication: PROPHYLAXIS

REACTIONS (1)
  - NEOPLASM MALIGNANT [None]
